FAERS Safety Report 15164211 (Version 15)
Quarter: 2023Q2

REPORT INFORMATION
  Report Type: Spontaneous
  Country: US (occurrence: US)
  Receive Date: 20180719
  Receipt Date: 20230413
  Transmission Date: 20230721
  Serious: Yes (Hospitalization, Other)
  Sender: FDA-Public Use
  Company Number: US-PFIZER INC-2017426238

PATIENT
  Age: 74 Year
  Sex: Female
  Weight: 88 kg

DRUGS (11)
  1. XELJANZ [Suspect]
     Active Substance: TOFACITINIB CITRATE
     Indication: Eosinophilia
     Dosage: 5 MG, 2X/DAY
     Route: 048
     Dates: start: 201710
  2. XELJANZ [Suspect]
     Active Substance: TOFACITINIB CITRATE
     Indication: Hypereosinophilic syndrome
     Dosage: 5 MG, ALTERNATE DAY (ONE XELJANZ TABLET EVERY OTHER DAY)
     Route: 048
  3. XELJANZ [Suspect]
     Active Substance: TOFACITINIB CITRATE
     Dosage: 2 TABLETS ON MON, WED, FRI, SUN, 1 TABLET ON TUE, THU, SAT
     Route: 048
  4. XELJANZ [Suspect]
     Active Substance: TOFACITINIB CITRATE
     Dosage: 2 TABLETS OF 5 MG TUE, THU, SAT AND 1 TABLET 5 MG MON, WED, FRI, SUN
     Route: 048
  5. XELJANZ [Suspect]
     Active Substance: TOFACITINIB CITRATE
     Dosage: 1 DF, CYCLIC (TAKE 1 TABLET BY MOUTH ON MONDAY, WEDNESDAY, FRIDAY AND TAKE 2 TABLETS TUESDAY, THURSD
     Route: 048
  6. XELJANZ [Suspect]
     Active Substance: TOFACITINIB CITRATE
     Dosage: 2 DF, CYCLIC (TAKE 1 TABLET BY MOUTH ON MONDAY, WEDNESDAY, FRIDAY AND TAKE 2 TABLETS TUESDAY, THURSD
     Route: 048
  7. GLIPIZIDE [Concomitant]
     Active Substance: GLIPIZIDE
     Dosage: UNK
  8. LISINOPRIL [Concomitant]
     Active Substance: LISINOPRIL
     Dosage: UNK
  9. METFORMIN [Concomitant]
     Active Substance: METFORMIN HYDROCHLORIDE
     Dosage: UNK
  10. GLIMEPIRIDE [Concomitant]
     Active Substance: GLIMEPIRIDE
     Dosage: UNK
  11. TRIAMCINOLONE [Concomitant]
     Active Substance: TRIAMCINOLONE
     Dosage: UNK

REACTIONS (7)
  - Knee arthroplasty [Unknown]
  - Off label use [Unknown]
  - Off label use [Unknown]
  - Pain [Unknown]
  - Drug effective for unapproved indication [Unknown]
  - Cerebral disorder [Unknown]
  - COVID-19 [Unknown]

NARRATIVE: CASE EVENT DATE: 20171001
